FAERS Safety Report 4664079-4 (Version None)
Quarter: 2005Q2

REPORT INFORMATION
  Report Type: 
  Country: None (occurrence: None)
  Receive Date: 20050516
  Receipt Date: 20050429
  Transmission Date: 20051028
  Serious: Yes (Hospitalization)
  Sender: FDA-Public Use
  Company Number: 2005SP000412

PATIENT
  Sex: Female

DRUGS (1)
  1. LUNESTA [Suspect]
     Dosage: 1X; ORAL
     Route: 048
     Dates: start: 20050401

REACTIONS (5)
  - IATROGENIC INFECTION [None]
  - LOSS OF CONSCIOUSNESS [None]
  - MEDIASTINAL ABSCESS [None]
  - OVERDOSE [None]
  - RESPIRATORY DISTRESS [None]
